FAERS Safety Report 5059723-6 (Version None)
Quarter: 2006Q3

REPORT INFORMATION
  Report Type: 
  Country: None (occurrence: None)
  Receive Date: 20060724
  Receipt Date: 20060712
  Transmission Date: 20061208
  Serious: Yes (Other)
  Sender: FDA-Public Use
  Company Number: PHEH2006US08961

PATIENT
  Sex: Female

DRUGS (2)
  1. AREDIA [Suspect]
     Dates: start: 19990101, end: 20010101
  2. ZOMETA [Suspect]
     Dates: start: 20010101, end: 20040101

REACTIONS (4)
  - ANXIETY [None]
  - INJURY [None]
  - OSTEONECROSIS [None]
  - PAIN [None]
